FAERS Safety Report 24240128 (Version 5)
Quarter: 2024Q4

REPORT INFORMATION
  Report Type: Report from Study
  Country: US (occurrence: US)
  Receive Date: 20240822
  Receipt Date: 20241105
  Transmission Date: 20250115
  Serious: Yes (Hospitalization, Other)
  Sender: NOVARTIS
  Company Number: US-002147023-NVSC2024US133572

PATIENT
  Age: 24 Year
  Sex: Female

DRUGS (2)
  1. KESIMPTA [Suspect]
     Active Substance: OFATUMUMAB
     Indication: Product used for unknown indication
     Dosage: UNK (1ST INJECTION)
     Route: 065
     Dates: start: 20240625
  2. KESIMPTA [Suspect]
     Active Substance: OFATUMUMAB
     Dosage: UNK (SECOND INJECTION)
     Route: 065

REACTIONS (15)
  - Feeding disorder [Unknown]
  - Multiple sclerosis relapse [Unknown]
  - Hypoaesthesia [Unknown]
  - Paraesthesia [Unknown]
  - Throat irritation [Unknown]
  - Injection site bruising [Unknown]
  - Injection site pain [Unknown]
  - Hand-foot-and-mouth disease [Unknown]
  - Nausea [Unknown]
  - Gingival swelling [Unknown]
  - Oropharyngeal pain [Unknown]
  - Urinary tract infection [Unknown]
  - Fungal infection [Unknown]
  - Hypersensitivity [Unknown]
  - Neuralgia [Unknown]

NARRATIVE: CASE EVENT DATE: 20240625
